FAERS Safety Report 26004938 (Version 1)
Quarter: 2025Q4

REPORT INFORMATION
  Report Type: Spontaneous
  Country: LK (occurrence: LK)
  Receive Date: 20251106
  Receipt Date: 20251106
  Transmission Date: 20260118
  Serious: Yes (Hospitalization, Other)
  Sender: STRIDES
  Company Number: LK-STRIDES ARCOLAB LIMITED-2025SP013819

PATIENT
  Age: 69 Year
  Sex: Male

DRUGS (1)
  1. METHOTREXATE [Suspect]
     Active Substance: METHOTREXATE
     Indication: Eczema
     Dosage: 5 MG, EVERY 8 HOURS
     Route: 065

REACTIONS (7)
  - Incorrect dose administered [Unknown]
  - Mucosal inflammation [Recovered/Resolved]
  - Neutropenic sepsis [Recovering/Resolving]
  - Myelosuppression [Recovering/Resolving]
  - Toxicity to various agents [Recovering/Resolving]
  - Pancytopenia [Recovered/Resolved]
  - Off label use [Unknown]
